FAERS Safety Report 5046629-1 (Version None)
Quarter: 2006Q2

REPORT INFORMATION
  Report Type: 
  Country: None (occurrence: None)
  Receive Date: 20060601
  Receipt Date: 20060322
  Transmission Date: 20061013
  Serious: No
  Sender: FDA-Public Use
  Company Number: 2006PV010698

PATIENT
  Age: 71 Year
  Sex: Female

DRUGS (4)
  1. BYETTA [Suspect]
     Indication: DIABETES MELLITUS NON-INSULIN-DEPENDENT
     Dosage: 5 MCG; BID; SC
     Route: 058
     Dates: start: 20060113
  2. NOVOLIN 70/30 [Concomitant]
  3. GLUCOPHAGE ^BRISTROL-MYERS SQUIBB^ [Concomitant]
  4. AVANDIA [Concomitant]

REACTIONS (7)
  - ABDOMINAL DISTENSION [None]
  - BLOOD GLUCOSE DECREASED [None]
  - BLOOD GLUCOSE INCREASED [None]
  - FEELING HOT [None]
  - PARAESTHESIA [None]
  - REGURGITATION OF FOOD [None]
  - WEIGHT DECREASED [None]
